FAERS Safety Report 8760248 (Version 1)
Quarter: 2012Q4

REPORT INFORMATION
  Report Type: Spontaneous
  Country: US (occurrence: None)
  Receive Date: 20120829
  Receipt Date: 20120829
  Transmission Date: 20130627
  Serious: No
  Sender: FDA-Public Use
  Company Number: None

PATIENT
  Sex: Female
  Weight: 92.53 kg

DRUGS (2)
  1. SIMVASTATIN [Suspect]
     Dates: start: 20100520, end: 20100615
  2. MEVACOR [Suspect]

REACTIONS (2)
  - Muscle spasms [None]
  - Influenza like illness [None]
